FAERS Safety Report 6216508-2 (Version None)
Quarter: 2009Q2

REPORT INFORMATION
  Report Type: 
  Country: None (occurrence: None)
  Receive Date: 20090603
  Receipt Date: 20090603
  Transmission Date: 20091009
  Serious: Yes (Other)
  Sender: FDA-Public Use
  Company Number: None

PATIENT
  Age: 23 Year
  Sex: Female
  Weight: 59 kg

DRUGS (2)
  1. BUCKLEY'S COUGH + FLU DAYTIME RELIEF EXTRA STRENGTH (NCH)(ACETAMINOPHE [Suspect]
     Indication: MALAISE
     Dosage: 1 DF, QD, ORAL
     Route: 048
     Dates: start: 20090519, end: 20090519
  2. BUCKLEY'S COUGH + FLU NIGHTIME RELIEF EXTRA STRENGTH (NCH)(ACETAMINOPH [Suspect]
     Dosage: 1 DF, QD, ORAL
     Route: 048
     Dates: start: 20090520, end: 20090520

REACTIONS (2)
  - HEART RATE INCREASED [None]
  - SYNCOPE [None]
